FAERS Safety Report 24039707 (Version 1)
Quarter: 2024Q3

REPORT INFORMATION
  Report Type: Spontaneous
  Country: ES (occurrence: ES)
  Receive Date: 20240702
  Receipt Date: 20240702
  Transmission Date: 20241017
  Serious: Yes (Other)
  Sender: RANBAXY
  Company Number: ES-AEMPS-1507194

PATIENT
  Age: 63 Year
  Sex: Male

DRUGS (2)
  1. CIPROFLOXACIN [Suspect]
     Active Substance: CIPROFLOXACIN
     Indication: Prostatitis
     Dosage: 500 MILLIGRAM, BID
     Route: 048
     Dates: start: 20240125, end: 20240201
  2. CIPROFLOXACIN [Suspect]
     Active Substance: CIPROFLOXACIN
     Dosage: 250 MILLIGRAM, BID
     Route: 048
     Dates: start: 20230120, end: 20240124

REACTIONS (1)
  - Muscle rupture [Unknown]

NARRATIVE: CASE EVENT DATE: 20230201
